FAERS Safety Report 15475488 (Version 2)
Quarter: 2019Q1

REPORT INFORMATION
  Report Type: Spontaneous
  Country: US (occurrence: US)
  Receive Date: 20181008
  Receipt Date: 20190306
  Transmission Date: 20190417
  Serious: No
  Sender: FDA-Public Use
  Company Number: US-GILEAD-2018-0367047

PATIENT
  Age: 62 Year
  Sex: Male

DRUGS (7)
  1. ASPIRINE [Concomitant]
     Active Substance: ASPIRIN
  2. LISINOPRIL. [Concomitant]
     Active Substance: LISINOPRIL
  3. EPCLUSA [Suspect]
     Active Substance: SOFOSBUVIR\VELPATASVIR
     Indication: CHRONIC HEPATITIS C
     Dosage: 1 DF, UNK
     Route: 048
     Dates: start: 201808
  4. CLOTRIMAZOLE. [Concomitant]
     Active Substance: CLOTRIMAZOLE
  5. CICLOPIROX. [Concomitant]
     Active Substance: CICLOPIROX
  6. RANITIDINE. [Concomitant]
     Active Substance: RANITIDINE
  7. AMLODIPINE BESYLATE. [Concomitant]
     Active Substance: AMLODIPINE BESYLATE

REACTIONS (2)
  - Diarrhoea [Not Recovered/Not Resolved]
  - Proctalgia [Not Recovered/Not Resolved]
